FAERS Safety Report 7187919-6 (Version None)
Quarter: 2010Q4

REPORT INFORMATION
  Report Type: 
  Country: None (occurrence: None)
  Receive Date: 20101222
  Receipt Date: 20100711
  Transmission Date: 20110411
  Serious: No
  Sender: FDA-Public Use
  Company Number: US-AMGEN-TCS423755

PATIENT

DRUGS (2)
  1. ENBREL [Suspect]
     Indication: RHEUMATOID ARTHRITIS
     Dosage: 50 MG, QWK
     Route: 058
     Dates: start: 20100101
  2. ENBREL [Suspect]
     Indication: JUVENILE ARTHRITIS

REACTIONS (9)
  - ARTHRALGIA [None]
  - HYPOTHYROIDISM [None]
  - JOINT STIFFNESS [None]
  - JOINT SWELLING [None]
  - MUSCLE CONTRACTURE [None]
  - MUSCULOSKELETAL STIFFNESS [None]
  - RASH ERYTHEMATOUS [None]
  - RASH MACULO-PAPULAR [None]
  - RASH PRURITIC [None]
